FAERS Safety Report 6834012-5 (Version None)
Quarter: 2010Q3

REPORT INFORMATION
  Report Type: 
  Country: None (occurrence: None)
  Receive Date: 20100712
  Receipt Date: 20100702
  Transmission Date: 20110219
  Serious: Yes (Death, Other)
  Sender: FDA-Public Use
  Company Number: US-AMGEN-QUU422108

PATIENT
  Sex: Female

DRUGS (2)
  1. ENBREL [Suspect]
     Indication: RHEUMATOID ARTHRITIS
     Dates: start: 20060605, end: 20070101
  2. ARAVA [Concomitant]

REACTIONS (9)
  - ABDOMINAL DISTENSION [None]
  - BEDRIDDEN [None]
  - BLISTER [None]
  - DEATH [None]
  - DECUBITUS ULCER [None]
  - MENTAL IMPAIRMENT [None]
  - RHEUMATOID ARTHRITIS [None]
  - SKIN HAEMORRHAGE [None]
  - SKIN LACERATION [None]
